FAERS Safety Report 5819974-7 (Version None)
Quarter: 2008Q3

REPORT INFORMATION
  Report Type: 
  Country: None (occurrence: None)
  Receive Date: 20080721
  Receipt Date: 20080716
  Transmission Date: 20090109
  Serious: Yes (Death, Hospitalization)
  Sender: FDA-Public Use
  Company Number: 2008SP009488

PATIENT
  Age: 68 Year
  Sex: Male

DRUGS (8)
  1. TEMODAR [Suspect]
     Indication: GLIOBLASTOMA MULTIFORME
     Dosage: 140 MG; PO, 300 MG; PO
     Route: 048
     Dates: start: 20070522, end: 20070629
  2. TEMODAR [Suspect]
     Indication: GLIOBLASTOMA MULTIFORME
     Dosage: 140 MG; PO, 300 MG; PO
     Route: 048
     Dates: start: 20070730, end: 20070803
  3. FLOMAX [Concomitant]
  4. NORCO [Concomitant]
  5. LEXAPRO [Concomitant]
  6. LYRICA [Concomitant]
  7. AGGRENOX [Concomitant]
  8. LIPITOR [Concomitant]

REACTIONS (3)
  - BRAIN HERNIATION [None]
  - CEREBROVASCULAR ACCIDENT [None]
  - ONCOLOGIC COMPLICATION [None]
